FAERS Safety Report 9623223 (Version 1)
Quarter: 2013Q4

REPORT INFORMATION
  Report Type: Spontaneous
  Country: US (occurrence: None)
  Receive Date: 20131010
  Receipt Date: 20131010
  Transmission Date: 20140711
  Serious: Yes (Hospitalization)
  Sender: FDA-Public Use
  Company Number: IPC201309-000384

PATIENT
  Age: 47 Year
  Sex: Female

DRUGS (5)
  1. METOCLOPRAMIDE HYDROCHLORIDE [Suspect]
  2. ONDANSETRON HYDROCHLORIDE [Suspect]
  3. PROMETHAZINE HYDROCHLORIDE [Suspect]
  4. CLOZAPINE [Suspect]
     Dosage: AT NIGHT
  5. CITALOPRAM [Suspect]

REACTIONS (1)
  - Serotonin syndrome [None]
